FAERS Safety Report 9982376 (Version 1)
Quarter: 2014Q1

REPORT INFORMATION
  Report Type: Spontaneous
  Country: US (occurrence: None)
  Receive Date: 20140306
  Receipt Date: 20140306
  Transmission Date: 20141002
  Serious: No
  Sender: FDA-Public Use
  Company Number: None

PATIENT
  Age: 61 Year
  Sex: Male
  Weight: 74.3 kg

DRUGS (4)
  1. CISPLATIN [Suspect]
  2. FENTANYL PATCH [Concomitant]
  3. OXYCODONE [Concomitant]
  4. OXYCONTIN [Concomitant]

REACTIONS (6)
  - Nausea [None]
  - Weight decreased [None]
  - Fear [None]
  - Vomiting [None]
  - Failure to thrive [None]
  - Dehydration [None]
